FAERS Safety Report 5442109-X (Version None)
Quarter: 2007Q3

REPORT INFORMATION
  Report Type: 
  Country: None (occurrence: None)
  Receive Date: 20070904
  Receipt Date: 20070824
  Transmission Date: 20080115
  Serious: Yes (Hospitalization)
  Sender: FDA-Public Use
  Company Number: FR-ROCHE-513430

PATIENT
  Age: 76 Year
  Sex: Male

DRUGS (2)
  1. ROCEPHIN [Suspect]
     Indication: URINARY TRACT INFECTION
     Route: 065
  2. SINEMET [Concomitant]

REACTIONS (2)
  - NEPHRITIS ALLERGIC [None]
  - THROMBOCYTOPENIA [None]
